FAERS Safety Report 19374800 (Version 1)
Quarter: 2021Q2

REPORT INFORMATION
  Report Type: Spontaneous
  Country: AT (occurrence: AT)
  Receive Date: 20210604
  Receipt Date: 20210604
  Transmission Date: 20210717
  Serious: Yes (Hospitalization, Other)
  Sender: FDA-Public Use
  Company Number: AT-MYLANLABS-2021M1032035

PATIENT
  Age: 16 Year
  Sex: Female

DRUGS (13)
  1. PREGABALIN. [Suspect]
     Active Substance: PREGABALIN
     Indication: MIGRAINE WITH AURA
     Dosage: 50 MILLIGRAM, QD, STARTED WITH 50 MG/DAY, DIVIDED INTO TWO SINGLE DOSES
     Route: 065
     Dates: start: 201705
  2. PREGABALIN. [Suspect]
     Active Substance: PREGABALIN
     Dosage: 250 MILLIGRAM, QD, TITRATED UP TO A DAILY DOSE OF 250 MG
     Route: 065
  3. FLUNARIZINE [Concomitant]
     Active Substance: FLUNARIZINE
     Indication: MIGRAINE WITH AURA
     Dosage: 10 MILLIGRAM, QD
     Route: 065
     Dates: start: 201708
  4. LEVETIRACETAM. [Concomitant]
     Active Substance: LEVETIRACETAM
     Dosage: 2 GRAM, QD, SLOWLY TITRATED UP TO 2 G/DAY WITHIN 6 WEEKS.
     Route: 065
  5. LAMOTRIGINE. [Suspect]
     Active Substance: LAMOTRIGINE
     Dosage: 200 MILLIGRAM, QD, THE DOSE OF LAM..
     Route: 065
     Dates: start: 201703
  6. VALPROIC ACID. [Concomitant]
     Active Substance: VALPROIC ACID
     Indication: MIGRAINE WITH AURA
     Dosage: 1000 MILLIGRAM, QD
     Route: 065
     Dates: start: 201706
  7. ZONISAMIDE. [Suspect]
     Active Substance: ZONISAMIDE
     Dosage: 350 MILLIGRAM, QD
     Route: 065
     Dates: start: 2018
  8. DRONABINOL. [Suspect]
     Active Substance: DRONABINOL
     Indication: MIGRAINE WITH AURA
     Dosage: 2.5 MILLIGRAM, QD
     Route: 065
     Dates: start: 201802
  9. LEVETIRACETAM. [Concomitant]
     Active Substance: LEVETIRACETAM
     Indication: MIGRAINE WITH AURA
     Dosage: 500 MILLIGRAM, QD
     Route: 065
     Dates: start: 201711
  10. CORTISONE [Concomitant]
     Active Substance: CORTISONE
     Indication: STATUS MIGRAINOSUS
     Dosage: UNK
     Route: 042
     Dates: start: 201801
  11. ZONISAMIDE. [Suspect]
     Active Substance: ZONISAMIDE
     Indication: MIGRAINE WITH AURA
     Dosage: 50 MILLIGRAM, QD, STARTED A..
     Route: 065
     Dates: start: 201805
  12. LAMOTRIGINE. [Suspect]
     Active Substance: LAMOTRIGINE
     Indication: MIGRAINE WITH AURA
     Dosage: 125 MILLIGRAM
     Route: 065
     Dates: start: 201608
  13. METHYLPREDNISOLONE. [Suspect]
     Active Substance: METHYLPREDNISOLONE
     Indication: MIGRAINE WITH AURA
     Dosage: 80 MILLIGRAM, QD
     Route: 048
     Dates: start: 201702, end: 201703

REACTIONS (2)
  - Off label use [Unknown]
  - Drug ineffective [Unknown]

NARRATIVE: CASE EVENT DATE: 201805
